FAERS Safety Report 15819386 (Version 4)
Quarter: 2020Q3

REPORT INFORMATION
  Report Type: Report from Study
  Country: US (occurrence: US)
  Receive Date: 20190114
  Receipt Date: 20200820
  Transmission Date: 20201102
  Serious: No
  Sender: FDA-Public Use
  Company Number: PHEH2019US001442

PATIENT
  Age: 54 Year
  Sex: Female

DRUGS (2)
  1. GILENYA [Suspect]
     Active Substance: FINGOLIMOD HYDROCHLORIDE
     Indication: MULTIPLE SCLEROSIS
     Dosage: UNK
     Route: 065
     Dates: start: 20180625
  2. GILENYA [Suspect]
     Active Substance: FINGOLIMOD HYDROCHLORIDE
     Dosage: 0.5 MG, QD
     Route: 048
     Dates: start: 20181006

REACTIONS (7)
  - Back pain [Unknown]
  - Movement disorder [Not Recovered/Not Resolved]
  - Liver function test abnormal [Unknown]
  - Amnesia [Unknown]
  - Alopecia [Unknown]
  - Clumsiness [Unknown]
  - Fatigue [Not Recovered/Not Resolved]

NARRATIVE: CASE EVENT DATE: 20190108
